FAERS Safety Report 11306393 (Version 2)
Quarter: 2015Q3

REPORT INFORMATION
  Report Type: Spontaneous
  Country: JP (occurrence: JP)
  Receive Date: 20150723
  Receipt Date: 20150921
  Transmission Date: 20151125
  Serious: Yes (Other)
  Sender: FDA-Public Use
  Company Number: JP-GLAXOSMITHKLINE-JP2015JPN097081

PATIENT
  Age: 49 Year
  Sex: Female
  Weight: 36 kg

DRUGS (12)
  1. ZOFRAN [Concomitant]
     Active Substance: ONDANSETRON HYDROCHLORIDE
     Indication: VOMITING
     Dosage: 4 MG, QD
     Dates: start: 20150701, end: 20150704
  2. LOXOPROFEN [Concomitant]
     Active Substance: LOXOPROFEN
     Indication: ANALGESIC THERAPY
     Dosage: 60 MG, BID
     Dates: start: 20150701, end: 20150704
  3. UNKNOWN DRUG [Concomitant]
     Active Substance: UNSPECIFIED INGREDIENT
     Indication: INSOMNIA
     Dosage: 15 MG, QD
     Dates: start: 20150617, end: 20150704
  4. VOTRIENT [Suspect]
     Active Substance: PAZOPANIB HYDROCHLORIDE
     Dosage: 200 MG, TID
     Route: 048
     Dates: start: 20150624, end: 20150703
  5. VOTRIENT [Suspect]
     Active Substance: PAZOPANIB HYDROCHLORIDE
     Indication: PERITONEAL SARCOMA
     Dosage: 800 MG, 1D
     Route: 048
     Dates: start: 20150603
  6. FENTANYL CITRATE. [Concomitant]
     Active Substance: FENTANYL CITRATE
     Indication: ANALGESIC THERAPY
     Dosage: 200 ?G, QID
     Dates: start: 20150617, end: 20150705
  7. FENTOS [Concomitant]
     Active Substance: FENTANYL
     Indication: ANALGESIC THERAPY
     Dosage: 6 MG, 1D
     Dates: start: 20150617
  8. ROZEREM [Concomitant]
     Active Substance: RAMELTEON
     Indication: INSOMNIA
     Dosage: 8 MG, QD
     Dates: start: 20150617, end: 20150704
  9. CARBAMAZEPINE. [Concomitant]
     Active Substance: CARBAMAZEPINE
     Indication: INSOMNIA
     Dosage: 100 MG, QD
     Dates: start: 20150701, end: 20150704
  10. ZYPREXA [Concomitant]
     Active Substance: OLANZAPINE
     Dosage: UNK
  11. SULPIRIDE [Concomitant]
     Active Substance: SULPIRIDE
     Indication: DEPRESSION
     Dosage: 50 MG, BID
     Dates: start: 20150617, end: 20150704
  12. TETRAMIDE [Concomitant]
     Active Substance: MIANSERIN
     Dosage: UNK

REACTIONS (15)
  - Blepharospasm [Recovered/Resolved]
  - Nystagmus [Recovered/Resolved]
  - Dyslalia [Recovered/Resolved]
  - Aura [Unknown]
  - Brain oedema [Recovered/Resolved]
  - Hypertension [Recovered/Resolved]
  - Disorientation [Unknown]
  - Somnolence [Unknown]
  - Visual impairment [Recovered/Resolved]
  - Nausea [Recovered/Resolved]
  - Vision blurred [Recovered/Resolved]
  - Headache [Recovered/Resolved]
  - Loss of consciousness [Recovered/Resolved]
  - Posterior reversible encephalopathy syndrome [Recovered/Resolved]
  - Malaise [Recovered/Resolved]

NARRATIVE: CASE EVENT DATE: 20150705
